FAERS Safety Report 20524284 (Version 1)
Quarter: 2022Q1

REPORT INFORMATION
  Report Type: Spontaneous
  Country: ES (occurrence: ES)
  Receive Date: 20220228
  Receipt Date: 20220228
  Transmission Date: 20220423
  Serious: Yes (Disabling, Congenital Anomaly)
  Sender: FDA-Public Use
  Company Number: ES-ABBVIE-22K-144-4288997-00

PATIENT
  Sex: Female

DRUGS (2)
  1. VALPROATE SODIUM [Suspect]
     Active Substance: VALPROATE SODIUM
     Indication: Maternal exposure timing unspecified
     Route: 064
  2. VALPROATE SODIUM [Concomitant]
     Active Substance: VALPROATE SODIUM
     Indication: Maternal exposure timing unspecified

REACTIONS (10)
  - Calcium deficiency [Recovered/Resolved]
  - Dysarthria [Unknown]
  - Social problem [Not Recovered/Not Resolved]
  - Visual impairment [Unknown]
  - Foetal anticonvulsant syndrome [Not Recovered/Not Resolved]
  - Attention deficit hyperactivity disorder [Unknown]
  - Walking disability [Unknown]
  - Unevaluable event [Unknown]
  - Autism spectrum disorder [Unknown]
  - Foetal exposure during pregnancy [Unknown]

NARRATIVE: CASE EVENT DATE: 20020101
